FAERS Safety Report 22281340 (Version 1)
Quarter: 2023Q2

REPORT INFORMATION
  Report Type: Spontaneous
  Country: US (occurrence: US)
  Receive Date: 20230504
  Receipt Date: 20230504
  Transmission Date: 20230722
  Serious: No
  Sender: FDA-Public Use
  Company Number: US-Accord-304865

PATIENT
  Age: 84 Year
  Sex: Male
  Weight: 78.02 kg

DRUGS (1)
  1. FLUOROURACIL [Suspect]
     Active Substance: FLUOROURACIL
     Indication: Basal cell carcinoma
     Dosage: 5% CREAM APPLIED TOPICALLY, (JUST ENOUGH TO COVER AN AREA OF ABOUT 1 SQUARE INCH)
     Route: 061

REACTIONS (3)
  - Application site erythema [Unknown]
  - Application site irritation [Unknown]
  - Wrong technique in product usage process [Unknown]
